FAERS Safety Report 18592391 (Version 1)
Quarter: 2020Q4

REPORT INFORMATION
  Report Type: Spontaneous
  Country: US (occurrence: US)
  Receive Date: 20201208
  Receipt Date: 20201208
  Transmission Date: 20210114
  Serious: No
  Sender: FDA-Public Use
  Company Number: US-ASTRAZENECA-2020SF51571

PATIENT
  Sex: Female

DRUGS (2)
  1. PULMICORT FLEXHALER [Suspect]
     Active Substance: BUDESONIDE
     Route: 055
  2. PULMICORT FLEXHALER [Suspect]
     Active Substance: BUDESONIDE
     Dosage: 180 MCG, 2 PUFFS, TWICE A DAY
     Route: 055

REACTIONS (6)
  - Intentional product misuse [Unknown]
  - Product dose omission issue [Unknown]
  - Asthma [Unknown]
  - Irritability [Unknown]
  - Respiratory tract congestion [Unknown]
  - Device defective [Unknown]
